FAERS Safety Report 23071194 (Version 1)
Quarter: 2023Q4

REPORT INFORMATION
  Report Type: Report from Study
  Country: US (occurrence: US)
  Receive Date: 20231016
  Receipt Date: 20231016
  Transmission Date: 20240110
  Serious: Yes (Other)
  Sender: FDA-Public Use
  Company Number: US-ABBVIE-5447156

PATIENT
  Sex: Male

DRUGS (1)
  1. IMBRUVICA [Suspect]
     Active Substance: IBRUTINIB
     Indication: Chronic lymphocytic leukaemia
     Route: 048
     Dates: start: 20191030

REACTIONS (6)
  - Loss of consciousness [Unknown]
  - Abdominal discomfort [Unknown]
  - Decreased appetite [Unknown]
  - Nasopharyngitis [Unknown]
  - White blood cell count decreased [Unknown]
  - Cough [Unknown]

NARRATIVE: CASE EVENT DATE: 20230101
